FAERS Safety Report 24212430 (Version 2)
Quarter: 2024Q3

REPORT INFORMATION
  Report Type: Spontaneous
  Country: JP (occurrence: JP)
  Receive Date: 20240815
  Receipt Date: 20240915
  Transmission Date: 20241016
  Serious: Yes (Death, Hospitalization)
  Sender: ROCHE
  Company Number: JP-CHUGAI-2024027469

PATIENT
  Age: 62 Year
  Sex: Male

DRUGS (3)
  1. TECENTRIQ [Suspect]
     Active Substance: ATEZOLIZUMAB
     Indication: Hepatocellular carcinoma
     Dosage: 1200 MILLIGRAM, ONCE/3WEEKS
     Route: 042
     Dates: start: 20240628
  2. AVASTIN [Suspect]
     Active Substance: BEVACIZUMAB
     Indication: Hepatocellular carcinoma
     Dosage: 15 MILLIGRAM/KILOGRAM, ONCE/3WEEKS
     Route: 042
     Dates: start: 20240628
  3. LENOGRASTIM [Suspect]
     Active Substance: LENOGRASTIM
     Indication: Agranulocytosis
     Route: 065
     Dates: start: 2024, end: 2024

REACTIONS (2)
  - Agranulocytosis [Not Recovered/Not Resolved]
  - Hepatic cirrhosis [Fatal]

NARRATIVE: CASE EVENT DATE: 20240701
